FAERS Safety Report 5907274-6 (Version None)
Quarter: 2008Q4

REPORT INFORMATION
  Report Type: 
  Country: None (occurrence: None)
  Receive Date: 20081003
  Receipt Date: 20080926
  Transmission Date: 20090506
  Serious: Yes (Other)
  Sender: FDA-Public Use
  Company Number: PHNU2007DE04244

PATIENT
  Sex: Female

DRUGS (17)
  1. RASILEZ [Suspect]
     Indication: HYPERTENSION
     Dosage: 150 MG, UNK
     Route: 048
     Dates: start: 20071201
  2. RASILEZ [Suspect]
     Dosage: 300 MG/DAY
  3. UNAT [Concomitant]
     Dosage: 0.25 DF (10 MG)/DAY
     Route: 065
  4. BISOPROLOL FUMARATE [Concomitant]
     Route: 065
  5. DURAGESIC-100 [Concomitant]
     Indication: OSTEOPOROSIS
     Route: 065
  6. DURAGESIC-100 [Concomitant]
     Indication: OSTEOARTHRITIS
  7. DURAGESIC-100 [Concomitant]
     Indication: PAIN
  8. PANTOZOL [Concomitant]
     Route: 065
  9. CEDUR [Concomitant]
     Route: 065
  10. ALLOPURINOL [Concomitant]
     Route: 065
  11. ACETYLSALICYLIC ACID SRT [Concomitant]
     Route: 065
  12. METAMIZOLE [Concomitant]
     Route: 065
  13. RAMIPRIL [Concomitant]
  14. NOVALGIN                                /SCH/ [Concomitant]
     Indication: OSTEOPOROSIS
  15. NOVALGIN                                /SCH/ [Concomitant]
     Indication: OSTEOARTHRITIS
  16. NOVALGIN                                /SCH/ [Concomitant]
     Indication: PAIN
  17. VALIUM [Concomitant]
     Dosage: 2.5 MG, QD
     Dates: start: 20080901

REACTIONS (5)
  - ASTHENIA [None]
  - DIZZINESS [None]
  - DRUG INEFFECTIVE [None]
  - GAIT DISTURBANCE [None]
  - TUMOUR EXCISION [None]
